FAERS Safety Report 4905688-4 (Version None)
Quarter: 2006Q1

REPORT INFORMATION
  Report Type: 
  Country: None (occurrence: None)
  Receive Date: 20060203
  Receipt Date: 20051229
  Transmission Date: 20060701
  Serious: Yes (Hospitalization)
  Sender: FDA-Public Use
  Company Number: CLOF-10180

PATIENT
  Age: 27 Year
  Sex: Female
  Weight: 61.6 kg

DRUGS (9)
  1. CLOFARABINE [Suspect]
     Indication: ACUTE LYMPHOCYTIC LEUKAEMIA
     Dosage: 20 MG/M2 IV
     Route: 042
     Dates: start: 20051206, end: 20051214
  2. CYCLOPHOSPHAMIDE [Suspect]
     Indication: ACUTE LYMPHOCYTIC LEUKAEMIA
     Dosage: 200 MG/M2 IV
     Route: 042
     Dates: start: 20051205, end: 20051214
  3. VORICONAZOLE [Concomitant]
  4. BACTRIM [Concomitant]
  5. PROTONIX [Concomitant]
  6. VALTREX [Concomitant]
  7. NORFLOXACIN [Concomitant]
  8. ALLOPURINOL [Concomitant]
  9. PHOSLO [Concomitant]

REACTIONS (12)
  - ALOPECIA [None]
  - BLOOD BILIRUBIN INCREASED [None]
  - CARBON DIOXIDE DECREASED [None]
  - COMPUTERISED TOMOGRAM ABNORMAL [None]
  - DIARRHOEA [None]
  - HEADACHE [None]
  - LIVER FUNCTION TEST ABNORMAL [None]
  - PANCREATITIS [None]
  - PLATELET COUNT DECREASED [None]
  - PNEUMONIA FUNGAL [None]
  - PYREXIA [None]
  - RASH [None]
